FAERS Safety Report 15333310 (Version 2)
Quarter: 2018Q3

REPORT INFORMATION
  Report Type: Spontaneous
  Country: US (occurrence: US)
  Receive Date: 20180830
  Receipt Date: 20180904
  Transmission Date: 20181010
  Serious: No
  Sender: FDA-Public Use
  Company Number: US-B.I. PHARMACEUTICALS,INC./RIDGEFIELD-2018-BI-042826

PATIENT
  Sex: Female

DRUGS (5)
  1. ATENOLOL. [Concomitant]
     Active Substance: ATENOLOL
     Indication: ATRIAL FIBRILLATION
     Dosage: ONE TABLET DAILY;  FORMULATION: TABLET;
     Route: 048
  2. ASPIRIN. [Concomitant]
     Active Substance: ASPIRIN
     Indication: THROMBOSIS PROPHYLAXIS
     Dosage: ONE TABLET DAILY;  FORMULATION: TABLET;
     Route: 048
  3. JARDIANCE [Suspect]
     Active Substance: EMPAGLIFLOZIN
     Indication: TYPE 2 DIABETES MELLITUS
     Dosage: FORMULATION: TABLET? ADMINISTRATION CORRECT? YES ?ACTION(S) TAKEN WITH PRODUCT: DOSE NOT CHANGED
     Route: 048
  4. HUMALOG [Concomitant]
     Active Substance: INSULIN LISPRO
     Indication: TYPE 2 DIABETES MELLITUS
     Dosage: FORMULATION: SUBCUTANEOUS;
     Route: 058
  5. TOUJEO [Concomitant]
     Active Substance: INSULIN GLARGINE
     Indication: TYPE 2 DIABETES MELLITUS
     Dosage: BETWEEN 30 OR 40 UNITS;  FORM STRENGTH: 300 MG/ML; FORMULATION: SUBCUTANEOUS
     Route: 058

REACTIONS (3)
  - Pruritus [Unknown]
  - Drug ineffective [Not Recovered/Not Resolved]
  - Product physical issue [Unknown]

NARRATIVE: CASE EVENT DATE: 2016
